FAERS Safety Report 17056010 (Version 1)
Quarter: 2019Q4

REPORT INFORMATION
  Report Type: Spontaneous
  Country: DE (occurrence: DE)
  Receive Date: 20191121
  Receipt Date: 20191121
  Transmission Date: 20200122
  Serious: Yes (Hospitalization, Other)
  Sender: FDA-Public Use
  Company Number: DE-B.I. PHARMACEUTICALS,INC./RIDGEFIELD-2019-BI-109976

PATIENT
  Age: 72 Year
  Sex: Female
  Weight: 61.5 kg

DRUGS (9)
  1. BISOPROLOL [Concomitant]
     Active Substance: BISOPROLOL
     Indication: ATRIAL FIBRILLATION
     Dosage: 2.5, 0.5 NOT REPORTED
     Route: 048
  2. BISOPROLOL [Concomitant]
     Active Substance: BISOPROLOL
     Indication: CARDIAC PACEMAKER INSERTION
  3. PRADAXA [Suspect]
     Active Substance: DABIGATRAN ETEXILATE MESYLATE
     Indication: ATRIAL FIBRILLATION
     Route: 048
     Dates: start: 201801, end: 201808
  4. EXFORGE [Concomitant]
     Active Substance: AMLODIPINE BESYLATE\VALSARTAN
     Indication: HYPERTENSION
     Dosage: 5/160
     Route: 048
  5. PRADAXA [Suspect]
     Active Substance: DABIGATRAN ETEXILATE MESYLATE
     Route: 048
     Dates: start: 201808, end: 20191024
  6. PANTOPRAZOL [PANTOPRAZOLE] [Concomitant]
     Active Substance: PANTOPRAZOLE
     Indication: GASTRITIS
     Route: 048
  7. L THYROX [Concomitant]
     Active Substance: LEVOTHYROXINE SODIUM
     Indication: HYPOTHYROIDISM
     Dosage: 75
     Route: 048
  8. IBEROGAST [Concomitant]
     Active Substance: HERBALS
     Indication: DRUG THERAPY
     Route: 048
  9. PANTOPRAZOL [PANTOPRAZOLE] [Concomitant]
     Active Substance: PANTOPRAZOLE
     Indication: REGURGITATION

REACTIONS (11)
  - Headache [Unknown]
  - Neck pain [Unknown]
  - Speech disorder [Unknown]
  - Gait inability [Unknown]
  - General physical health deterioration [Unknown]
  - Subdural haemorrhage [Recovered/Resolved with Sequelae]
  - Anaemia [Unknown]
  - Gastrointestinal haemorrhage [Unknown]
  - Asthenia [Unknown]
  - Hemiparesis [Unknown]
  - Pain [Unknown]

NARRATIVE: CASE EVENT DATE: 201808
